FAERS Safety Report 7306508-3 (Version None)
Quarter: 2011Q1

REPORT INFORMATION
  Report Type: 
  Country: None (occurrence: None)
  Receive Date: 20110119
  Receipt Date: 20101028
  Transmission Date: 20110831
  Serious: Yes (Hospitalization)
  Sender: FDA-Public Use
  Company Number: A-US2010-41124

PATIENT
  Age: 71 Year
  Sex: Female

DRUGS (2)
  1. TADALAFIL [Concomitant]
  2. TRACLEER [Suspect]
     Indication: PULMONARY ARTERIAL HYPERTENSION
     Dosage: ORAL
     Route: 048
     Dates: start: 20061114

REACTIONS (2)
  - OXYGEN SATURATION DECREASED [None]
  - HEART RATE ABNORMAL [None]
